FAERS Safety Report 18580868 (Version 2)
Quarter: 2020Q4

REPORT INFORMATION
  Report Type: Spontaneous
  Country: RU (occurrence: RU)
  Receive Date: 20201204
  Receipt Date: 20201209
  Transmission Date: 20210114
  Serious: Yes (Other)
  Sender: FDA-Public Use
  Company Number: RU-BIOGEN-2020BI00952277

PATIENT
  Age: 51 Year
  Sex: Male

DRUGS (2)
  1. TYSABRI [Suspect]
     Active Substance: NATALIZUMAB
     Route: 065
     Dates: start: 20160216
  2. TYSABRI [Suspect]
     Active Substance: NATALIZUMAB
     Indication: RELAPSING-REMITTING MULTIPLE SCLEROSIS
     Route: 065

REACTIONS (5)
  - Conjunctivitis fungal [Unknown]
  - Formication [Unknown]
  - Optic atrophy [Unknown]
  - Keratitis fungal [Unknown]
  - Optic neuritis [Unknown]

NARRATIVE: CASE EVENT DATE: 20170810
